FAERS Safety Report 9592028 (Version 5)
Quarter: 2014Q1

REPORT INFORMATION
  Report Type: Spontaneous
  Country: US (occurrence: US)
  Receive Date: 20131004
  Receipt Date: 20140328
  Transmission Date: 20141002
  Serious: Yes (Hospitalization)
  Sender: FDA-Public Use
  Company Number: US-BIOGENIDEC-2013BI094662

PATIENT
  Age: 42 Year
  Sex: Female
  Weight: 55 kg

DRUGS (12)
  1. TYSABRI [Suspect]
     Indication: MULTIPLE SCLEROSIS
     Route: 042
     Dates: start: 20070723, end: 20130909
  2. CITALOPRAM [Concomitant]
     Route: 048
  3. CITALOPRAM [Concomitant]
     Route: 048
  4. DONEPEZIL [Concomitant]
     Route: 048
  5. TOLTERODINE [Concomitant]
     Route: 048
  6. VITAMIN B12 [Concomitant]
     Route: 048
  7. DOCUSATE [Concomitant]
     Route: 048
  8. SENNA [Concomitant]
     Route: 048
  9. BACLOFEN [Concomitant]
  10. VITAMIN D [Concomitant]
  11. MULTIVITAMIN [Concomitant]
     Route: 048
  12. VESICARE [Concomitant]
     Indication: NEUROGENIC BLADDER
     Dates: start: 20130605

REACTIONS (1)
  - Progressive multifocal leukoencephalopathy [Not Recovered/Not Resolved]
